FAERS Safety Report 5919047-9 (Version None)
Quarter: 2008Q4

REPORT INFORMATION
  Report Type: 
  Country: None (occurrence: None)
  Receive Date: 20081015
  Receipt Date: 20080929
  Transmission Date: 20090506
  Serious: Yes (Hospitalization)
  Sender: FDA-Public Use
  Company Number: DE-ASTRAZENECA-2008PK02147

PATIENT
  Age: 868 Month
  Sex: Female
  Weight: 63 kg

DRUGS (2)
  1. ARIMIDEX [Suspect]
     Indication: BREAST CANCER
     Route: 048
     Dates: start: 20040701
  2. FOSAVANCE [Concomitant]
     Dates: start: 20070501

REACTIONS (1)
  - ARRHYTHMIA [None]
